FAERS Safety Report 16627877 (Version 1)
Quarter: 2019Q3

REPORT INFORMATION
  Report Type: Spontaneous
  Country: US (occurrence: US)
  Receive Date: 20190612
  Receipt Date: 20190612
  Transmission Date: 20191004
  Serious: Yes (Hospitalization)
  Sender: FDA-Public Use
  Company Number: None

PATIENT
  Age: 40 Year
  Sex: Female

DRUGS (15)
  1. XIFAXAN [Concomitant]
     Active Substance: RIFAXIMIN
  2. POLY-IRON [Concomitant]
     Active Substance: IRON
  3. XOLAIR [Suspect]
     Active Substance: OMALIZUMAB
     Indication: MAST CELL ACTIVATION SYNDROME
     Route: 058
     Dates: start: 20170222
  4. INSULIN SYRG MIS [Concomitant]
  5. ALOSETRON [Concomitant]
     Active Substance: ALOSETRON
  6. VERAPAMIL [Concomitant]
     Active Substance: VERAPAMIL HYDROCHLORIDE
  7. FLUCONAZOLE. [Concomitant]
     Active Substance: FLUCONAZOLE
  8. AZATHIOPRINE. [Concomitant]
     Active Substance: AZATHIOPRINE
  9. ESCITALOPRAM [Concomitant]
     Active Substance: ESCITALOPRAM OXALATE
  10. LANSOPRAZOLE. [Concomitant]
     Active Substance: LANSOPRAZOLE
  11. CIPROFLOXACIN. [Concomitant]
     Active Substance: CIPROFLOXACIN
  12. GRANSETRON [Concomitant]
  13. METRONIDAZOL [Concomitant]
     Active Substance: METRONIDAZOLE
  14. NORETHINDRON [Concomitant]
  15. DIPHENHYDRAM [Concomitant]

REACTIONS (1)
  - Infection [None]
